FAERS Safety Report 17558389 (Version 1)
Quarter: 2020Q1

REPORT INFORMATION
  Report Type: Report from Study
  Country: US (occurrence: US)
  Receive Date: 20200318
  Receipt Date: 20200318
  Transmission Date: 20200409
  Serious: Yes (Death)
  Sender: FDA-Public Use
  Company Number: US-TAIHO ONCOLOGY  INC-EU-2020-00893

PATIENT
  Age: 54 Year
  Sex: Female
  Weight: 45.4 kg

DRUGS (2)
  1. MULIVITAMIN [Concomitant]
  2. LONSURF [Suspect]
     Active Substance: TIPIRACIL HYDROCHLORIDE\TRIFLURIDINE
     Indication: METASTATIC GASTRIC CANCER
     Dosage: UNKNOWN CYCLE
     Route: 048
     Dates: start: 20200218

REACTIONS (1)
  - Death [Fatal]

NARRATIVE: CASE EVENT DATE: 20200227
